FAERS Safety Report 17122121 (Version 8)
Quarter: 2021Q4

REPORT INFORMATION
  Report Type: Spontaneous
  Country: US (occurrence: US)
  Receive Date: 20191206
  Receipt Date: 20211228
  Transmission Date: 20220303
  Serious: Yes (Other)
  Sender: FDA-Public Use
  Company Number: US-PFIZER INC-2018452319

PATIENT
  Age: 63 Year
  Sex: Female
  Weight: 79 kg

DRUGS (5)
  1. LYRICA [Suspect]
     Active Substance: PREGABALIN
     Indication: Pain
     Dosage: 75 MG, THREE TIMES A DAY
     Dates: start: 2009
  2. LYRICA [Suspect]
     Active Substance: PREGABALIN
     Indication: Fibromyalgia
     Dosage: 100 MG, 1 CAPSULE 3 TIMES A DAY
     Route: 048
     Dates: start: 2012
  3. CELLCEPT [Concomitant]
     Active Substance: MYCOPHENOLATE MOFETIL
     Indication: Renal transplant
     Dosage: 250 MG, 2X/DAY
     Dates: start: 20090801
  4. TACROLIMUS [Concomitant]
     Active Substance: TACROLIMUS
     Indication: Renal transplant
     Dosage: 1 MG, 2X/DAY
     Dates: start: 20090801
  5. PROLIA [Concomitant]
     Active Substance: DENOSUMAB
     Indication: Bone disorder
     Dosage: UNK, ONCE EVERY 6 MONTHS

REACTIONS (5)
  - Lower limb fracture [Unknown]
  - Fall [Unknown]
  - Ankle fracture [Unknown]
  - Memory impairment [Unknown]
  - Sinus disorder [Unknown]

NARRATIVE: CASE EVENT DATE: 20191001
